FAERS Safety Report 8845991 (Version 1)
Quarter: 2012Q4

REPORT INFORMATION
  Report Type: 
  Country: US (occurrence: US)
  Receive Date: 20121017
  Receipt Date: 20121017
  Transmission Date: 20130627
  Serious: Yes (Hospitalization, Other)
  Sender: FDA-Public Use
  Company Number: US-009507513-2009-199669-NL

PATIENT

DRUGS (4)
  1. NUVARING [Suspect]
     Indication: CONTRACEPTION
     Dosage: CONTINUING: NO
     Dates: start: 20050831, end: 200707
  2. NUVARING [Suspect]
     Indication: MENSTRUAL CYCLE MANAGEMENT
  3. LEXAPRO [Concomitant]
     Indication: PRODUCT USED FOR UNKNOWN INDICATION
     Dosage: 10 mg, QD
     Route: 048
     Dates: start: 20060906
  4. PROPRANOLOL HYDROCHLORIDE [Concomitant]
     Indication: PALPITATIONS
     Dosage: 10 mg, BID
     Route: 048
     Dates: start: 20060914

REACTIONS (22)
  - Syncope [Unknown]
  - Ventricular extrasystoles [Unknown]
  - Biliary dyskinesia [Unknown]
  - Pulmonary embolism [Unknown]
  - Thrombophlebitis superficial [Unknown]
  - Palpitations [Not Recovered/Not Resolved]
  - Oedema [Unknown]
  - Cystocele [Unknown]
  - Dyspnoea [Unknown]
  - Arthritis [Unknown]
  - Off label use [Unknown]
  - Tendon sheath incision [Unknown]
  - Deep vein thrombosis [Unknown]
  - Inflammation [Unknown]
  - Cervicobrachial syndrome [Unknown]
  - Polycystic ovaries [Unknown]
  - Pain [Unknown]
  - Mental status changes [Unknown]
  - Contusion [Unknown]
  - Pyrexia [Unknown]
  - Complex regional pain syndrome [Unknown]
  - Drug ineffective [Unknown]
